FAERS Safety Report 24926150 (Version 1)
Quarter: 2025Q1

REPORT INFORMATION
  Report Type: Spontaneous
  Country: US (occurrence: US)
  Receive Date: 20250205
  Receipt Date: 20250205
  Transmission Date: 20250409
  Serious: No
  Sender: ROCHE
  Company Number: US-ROCHE-10000196333

PATIENT
  Sex: Female

DRUGS (2)
  1. XOLAIR [Suspect]
     Active Substance: OMALIZUMAB
     Indication: Asthma
     Dosage: STRENGTH: 150 MG/ML AND 75MG/0.5ML
     Route: 058
     Dates: start: 202109
  2. XOLAIR [Suspect]
     Active Substance: OMALIZUMAB

REACTIONS (7)
  - Dyspnoea [Unknown]
  - Throat tightness [Unknown]
  - Cough [Unknown]
  - Wheezing [Unknown]
  - Flushing [Unknown]
  - Urticaria [Unknown]
  - Nausea [Unknown]
